FAERS Safety Report 8231210-3 (Version None)
Quarter: 2012Q1

REPORT INFORMATION
  Report Type: 
  Country: None (occurrence: None)
  Receive Date: 20120323
  Receipt Date: 20120323
  Transmission Date: 20120608
  Serious: Yes (Hospitalization, Other)
  Sender: FDA-Public Use
  Company Number: None

PATIENT
  Age: 37 Year
  Sex: Male
  Weight: 104.32 kg

DRUGS (1)
  1. FLUOXETINE [Suspect]
     Indication: DEPRESSION
     Dosage: 20.0 MG
     Route: 048
     Dates: start: 20050315, end: 20101220

REACTIONS (4)
  - ALTERED STATE OF CONSCIOUSNESS [None]
  - PAIN [None]
  - THINKING ABNORMAL [None]
  - HEADACHE [None]
